FAERS Safety Report 17779793 (Version 5)
Quarter: 2020Q3

REPORT INFORMATION
  Report Type: Report from Study
  Country: US (occurrence: US)
  Receive Date: 20200513
  Receipt Date: 20200722
  Transmission Date: 20201102
  Serious: Yes (Hospitalization, Other)
  Sender: FDA-Public Use
  Company Number: US-ACTELION-A-NJ2020-201908

PATIENT
  Age: 69 Year
  Sex: Male
  Weight: 76.64 kg

DRUGS (8)
  1. CHLORHEXIDINE GLUCONATE;ISOPROPANOL [Concomitant]
  2. VELETRI [Suspect]
     Active Substance: EPOPROSTENOL
     Dosage: 22 NG/KG, PER MIN
     Route: 042
  3. VELETRI [Suspect]
     Active Substance: EPOPROSTENOL
     Dosage: 12 NG/KG, PER MIN
     Route: 042
  4. OXYGEN. [Concomitant]
     Active Substance: OXYGEN
     Dosage: 4 L
  5. VELETRI [Suspect]
     Active Substance: EPOPROSTENOL
     Indication: PULMONARY ARTERIAL HYPERTENSION
     Dosage: 10 NG/KG, PER MIN
     Route: 042
  6. VELETRI [Suspect]
     Active Substance: EPOPROSTENOL
     Dosage: 14 NG/KG, PER MIN
     Route: 042
  7. SILDENAFIL. [Suspect]
     Active Substance: SILDENAFIL
     Indication: PRODUCT USED FOR UNKNOWN INDICATION
     Route: 065
  8. SILDENAFIL CITRATE. [Concomitant]
     Active Substance: SILDENAFIL CITRATE

REACTIONS (25)
  - Vomiting [Unknown]
  - Hypotension [Unknown]
  - Skin disorder [Unknown]
  - Fatigue [Not Recovered/Not Resolved]
  - Major depression [Unknown]
  - Gait disturbance [Unknown]
  - Catheter site pruritus [Unknown]
  - Rash [Not Recovered/Not Resolved]
  - Parkinson^s disease [Unknown]
  - Pain in jaw [Not Recovered/Not Resolved]
  - Nausea [Unknown]
  - Asthenia [Unknown]
  - Neurodegenerative disorder [Unknown]
  - Atelectasis [Unknown]
  - Depressed mood [Unknown]
  - Dyspnoea exertional [Not Recovered/Not Resolved]
  - Vertigo [Not Recovered/Not Resolved]
  - Vertigo positional [Not Recovered/Not Resolved]
  - Flushing [Unknown]
  - Catheter site rash [Unknown]
  - Decreased appetite [Unknown]
  - Diarrhoea [Not Recovered/Not Resolved]
  - Oxygen saturation decreased [Unknown]
  - Hypoxia [Unknown]
  - Headache [Unknown]

NARRATIVE: CASE EVENT DATE: 20200416
